FAERS Safety Report 11936451 (Version 13)
Quarter: 2017Q1

REPORT INFORMATION
  Report Type: Report from Study
  Country: US (occurrence: US)
  Receive Date: 20160121
  Receipt Date: 20170112
  Transmission Date: 20170428
  Serious: Yes (Hospitalization, Other)
  Sender: FDA-Public Use
  Company Number: US-BIOGEN-2015BI151218

PATIENT
  Age: 53 Year
  Sex: Female

DRUGS (2)
  1. TECFIDERA [Suspect]
     Active Substance: DIMETHYL FUMARATE
     Indication: MULTIPLE SCLEROSIS
     Dosage: STARTING DOSE
     Route: 048
     Dates: start: 20140416, end: 20140422
  2. TECFIDERA [Suspect]
     Active Substance: DIMETHYL FUMARATE
     Dosage: MAINTENANCE DOSE
     Route: 048
     Dates: start: 20140423, end: 20150412

REACTIONS (26)
  - Device dislocation [Unknown]
  - Weight decreased [Unknown]
  - Weight increased [Not Recovered/Not Resolved]
  - Pneumonia [Unknown]
  - Urinary tract infection [Recovered/Resolved]
  - Dysstasia [Unknown]
  - Incision site infection [Recovered/Resolved]
  - General symptom [Unknown]
  - Platelet count decreased [Recovered/Resolved]
  - White blood cell count decreased [Unknown]
  - Abdominal discomfort [Unknown]
  - Oesophageal carcinoma [Recovered/Resolved]
  - Gastric disorder [Recovered/Resolved]
  - Blood glucose decreased [Unknown]
  - Nephrolithiasis [Recovered/Resolved]
  - Phlebitis [Unknown]
  - Memory impairment [Unknown]
  - Tremor [Unknown]
  - Hypophagia [Recovered/Resolved]
  - Dysphagia [Recovered/Resolved]
  - Pharyngeal anastomotic leak [Recovered/Resolved]
  - Gastric stent insertion [Unknown]
  - Skin lesion [Not Recovered/Not Resolved]
  - Pain in extremity [Recovered/Resolved]
  - Pain [Unknown]
  - Vomiting [Unknown]

NARRATIVE: CASE EVENT DATE: 201504
